FAERS Safety Report 12899535 (Version 1)
Quarter: 2016Q4

REPORT INFORMATION
  Report Type: Spontaneous
  Country: US (occurrence: US)
  Receive Date: 20161029
  Receipt Date: 20161029
  Transmission Date: 20170207
  Serious: Yes (Other)
  Sender: FDA-Public Use
  Company Number: None

PATIENT
  Age: 70 Year
  Sex: Male
  Weight: 135 kg

DRUGS (11)
  1. METFORMIN [Concomitant]
     Active Substance: METFORMIN HYDROCHLORIDE
  2. AMLODIPINE [Concomitant]
     Active Substance: AMLODIPINE BESYLATE
  3. LISINOPRIL. [Concomitant]
     Active Substance: LISINOPRIL
  4. SIM- VASTATIN [Concomitant]
  5. AMILORIDE [Concomitant]
     Active Substance: AMILORIDE
  6. LOSARTAN. [Concomitant]
     Active Substance: LOSARTAN
  7. LEVOTHYROXINE. [Concomitant]
     Active Substance: LEVOTHYROXINE
  8. GABAPENTIN. [Concomitant]
     Active Substance: GABAPENTIN
  9. COUMADIN [Concomitant]
     Active Substance: WARFARIN SODIUM
  10. ULORIC [Concomitant]
     Active Substance: FEBUXOSTAT
  11. LEVAQUIN [Suspect]
     Active Substance: LEVOFLOXACIN
     Indication: URINARY TRACT INFECTION
     Dosage: ?          QUANTITY:1 CAPSULE(S);?
     Route: 048
     Dates: start: 20161010, end: 20161016

REACTIONS (6)
  - Musculoskeletal pain [None]
  - Myalgia [None]
  - Musculoskeletal stiffness [None]
  - Pain in extremity [None]
  - Groin pain [None]
  - Tendon pain [None]

NARRATIVE: CASE EVENT DATE: 20161012
